FAERS Safety Report 4838036-9 (Version None)
Quarter: 2005Q4

REPORT INFORMATION
  Report Type: 
  Country: None (occurrence: None)
  Receive Date: 20051128
  Receipt Date: 20051116
  Transmission Date: 20060501
  Serious: Yes (Hospitalization)
  Sender: FDA-Public Use
  Company Number: FR-AVENTIS-200513762FR

PATIENT
  Age: 62 Year
  Sex: Male
  Weight: 130 kg

DRUGS (5)
  1. LASILIX [Suspect]
     Route: 048
     Dates: end: 20050831
  2. COAPROVEL [Suspect]
     Route: 048
     Dates: end: 20050831
  3. ALDACTONE [Suspect]
     Route: 048
     Dates: end: 20050831
  4. CRESTOR [Suspect]
     Route: 048
     Dates: end: 20050831
  5. KALEORID [Concomitant]
     Route: 048

REACTIONS (9)
  - ANURIA [None]
  - ASTHENIA [None]
  - BRADYCARDIA [None]
  - COUGH [None]
  - DYSPNOEA [None]
  - HAEMODIALYSIS [None]
  - HYPOTENSION [None]
  - LUNG DISORDER [None]
  - RENAL FAILURE ACUTE [None]
